FAERS Safety Report 10010160 (Version 1)
Quarter: 2014Q1

REPORT INFORMATION
  Report Type: Spontaneous
  Country: US (occurrence: US)
  Receive Date: 20140312
  Receipt Date: 20140312
  Transmission Date: 20141002
  Serious: No
  Sender: FDA-Public Use
  Company Number: US-INCYTE CORPORATION-2013IN001662

PATIENT
  Age: 72 Year
  Sex: Female

DRUGS (4)
  1. JAKAFI [Suspect]
     Indication: MYELOFIBROSIS
     Dosage: 15 MG, QD
     Route: 048
  2. LOSARTAN [Concomitant]
  3. DILTIAZEM [Concomitant]
  4. B-COMPLEX VITAMIN [Concomitant]

REACTIONS (2)
  - Back pain [Unknown]
  - Musculoskeletal pain [Unknown]
